FAERS Safety Report 18900677 (Version 2)
Quarter: 2024Q4

REPORT INFORMATION
  Report Type: Spontaneous
  Country: US (occurrence: US)
  Receive Date: 20210216
  Receipt Date: 20241023
  Transmission Date: 20250115
  Serious: No
  Sender: SANOFI AVENTIS
  Company Number: US-SA-SAC20210211001299

PATIENT
  Age: 60 Year
  Sex: Female
  Weight: 85.91 kg

DRUGS (3)
  1. DUPIXENT [Suspect]
     Active Substance: DUPILUMAB
     Indication: Dermatitis atopic
     Dosage: 300 MG, QOW
     Route: 058
     Dates: start: 201805
  2. METFORMIN HYDROCHLORIDE [Suspect]
     Active Substance: METFORMIN HYDROCHLORIDE
     Dosage: UNK
  3. MILK THISTLE [SILYBUM MARIANUM SEED] [Concomitant]
     Dosage: UNK

REACTIONS (11)
  - Intervertebral disc protrusion [Unknown]
  - Fall [Unknown]
  - Blood pressure increased [Unknown]
  - Fall [Unknown]
  - Head injury [Unknown]
  - Nasal injury [Unknown]
  - Pruritus [Unknown]
  - Skin exfoliation [Unknown]
  - Injection site discolouration [Unknown]
  - Dry eye [Unknown]
  - Eye pruritus [Unknown]

NARRATIVE: CASE EVENT DATE: 20241008
